FAERS Safety Report 11258171 (Version 1)
Quarter: 2015Q3

REPORT INFORMATION
  Report Type: Spontaneous
  Country: US (occurrence: None)
  Receive Date: 20150701
  Receipt Date: 20150701
  Transmission Date: 20151125
  Serious: Yes (Other)
  Sender: FDA-Public Use
  Company Number: 2015-00279

PATIENT
  Sex: Male

DRUGS (1)
  1. ACYCLOVIR (AMALLC) (ACYCLOVIR) SUSPENSION, 200MG/5ML [Suspect]
     Active Substance: ACYCLOVIR
     Indication: VARICELLA

REACTIONS (1)
  - Lymphadenopathy [None]
